FAERS Safety Report 18780992 (Version 1)
Quarter: 2021Q1

REPORT INFORMATION
  Report Type: Spontaneous
  Country: US (occurrence: US)
  Receive Date: 20210122
  Receipt Date: 20210122
  Transmission Date: 20210419
  Serious: No
  Sender: FDA-Public Use
  Company Number: None

PATIENT
  Age: 18 Year
  Sex: Male

DRUGS (1)
  1. HALOPER DEC INJ 100MG/ML [Suspect]
     Active Substance: HALOPERIDOL DECANOATE
     Route: 029
     Dates: start: 202012

REACTIONS (1)
  - Off label use [None]

NARRATIVE: CASE EVENT DATE: 20210122
